FAERS Safety Report 4282063-X (Version None)
Quarter: 2004Q1

REPORT INFORMATION
  Report Type: 
  Country: None (occurrence: None)
  Receive Date: 20040130
  Receipt Date: 20021030
  Transmission Date: 20041129
  Serious: No
  Sender: FDA-Public Use
  Company Number: US-BRISTOL-MYERS SQUIBB COMPANY-12096624

PATIENT
  Age: 49 Year
  Sex: Female
  Weight: 67 kg

DRUGS (7)
  1. TRAZODONE HCL [Suspect]
     Indication: INSOMNIA
     Dosage: MD PRESCRIBED 150 MG BUT CONSUMER TOOK 200 MG QD FOR THE ^LAST FEW NIGHTS^.  TOOK 150MG QD.
     Route: 048
     Dates: start: 20010801, end: 20030601
  2. TRAZODONE HCL [Suspect]
     Indication: DEPRESSION
     Dosage: MD PRESCRIBED 150 MG BUT CONSUMER TOOK 200 MG QD FOR THE ^LAST FEW NIGHTS^.  TOOK 150MG QD.
     Route: 048
     Dates: start: 20010801, end: 20030601
  3. PAXIL [Suspect]
     Indication: STRESS SYMPTOMS
     Dates: start: 20021029
  4. SPIRONOLACTONE [Concomitant]
  5. VITAMIN B [Concomitant]
  6. TRIPTAFEN [Concomitant]
  7. SAME [Concomitant]

REACTIONS (8)
  - ALTERED VISUAL DEPTH PERCEPTION [None]
  - ANGINA UNSTABLE [None]
  - ARRHYTHMIA [None]
  - CARDIAC STRESS TEST ABNORMAL [None]
  - EYE DISORDER [None]
  - HEART RATE IRREGULAR [None]
  - HYPOACUSIS [None]
  - HYPOVENTILATION [None]
